FAERS Safety Report 4605998-4 (Version None)
Quarter: 2005Q2

REPORT INFORMATION
  Report Type: 
  Country: None (occurrence: None)
  Receive Date: 20050303
  Receipt Date: 20041203
  Transmission Date: 20051028
  Serious: No
  Sender: FDA-Public Use
  Company Number: 200421119BWH

PATIENT
  Age: 68 Year
  Sex: Male

DRUGS (8)
  1. LEVITRA [Suspect]
     Indication: ERECTILE DYSFUNCTION
     Dosage: 5 MG, PRN, ORAL;  10 MG, TOTAL DAILY, ORAL
     Route: 048
     Dates: start: 20040701
  2. LEVITRA [Suspect]
     Indication: ERECTILE DYSFUNCTION
     Dosage: 5 MG, PRN, ORAL;  10 MG, TOTAL DAILY, ORAL
     Route: 048
     Dates: start: 20040701
  3. LASIX [Concomitant]
  4. TOPROL-XL [Concomitant]
  5. PLAVIX [Concomitant]
  6. LIPITOR [Concomitant]
  7. PREDNISONE TAB [Concomitant]
  8. METHOTREXATE [Concomitant]

REACTIONS (1)
  - ERECTILE DYSFUNCTION [None]
